FAERS Safety Report 25229593 (Version 6)
Quarter: 2025Q3

REPORT INFORMATION
  Report Type: Spontaneous
  Country: MX (occurrence: MX)
  Receive Date: 20250423
  Receipt Date: 20250809
  Transmission Date: 20251020
  Serious: Yes (Other)
  Sender: ALEXION PHARMACEUTICALS
  Company Number: MX-AstraZeneca-CH-00846994A

PATIENT
  Age: 83 Year
  Sex: Female
  Weight: 62 kg

DRUGS (16)
  1. BUDESONIDE\FORMOTEROL\GLYCOPYRRONIUM [Suspect]
     Active Substance: BUDESONIDE\FORMOTEROL\GLYCOPYRRONIUM
     Indication: Chronic obstructive pulmonary disease
     Dosage: 2 DOSAGE FORM, Q12H
     Dates: start: 20250329, end: 20250405
  2. BUDESONIDE\FORMOTEROL\GLYCOPYRRONIUM [Suspect]
     Active Substance: BUDESONIDE\FORMOTEROL\GLYCOPYRRONIUM
     Dosage: 1 DOSAGE FORM, Q12H
     Dates: start: 20250406, end: 20250410
  3. LIRAGLUTIDE [Concomitant]
     Active Substance: LIRAGLUTIDE
     Indication: Diabetes mellitus
     Dosage: 1.8 INTERNATIONAL UNIT, QD
     Dates: start: 20230409
  4. SERETIDE [Concomitant]
     Active Substance: FLUTICASONE PROPIONATE\SALMETEROL XINAFOATE
     Indication: Chronic obstructive pulmonary disease
     Dosage: 50 MCG/100 MCG, Q12H
     Dates: start: 2020
  5. INSULIN GLARGINE [Concomitant]
     Active Substance: INSULIN GLARGINE
     Indication: Diabetes mellitus
     Dosage: 20 UI, QD AT NIGHT
     Dates: start: 202407
  6. ATORVASTATIN [Concomitant]
     Active Substance: ATORVASTATIN
     Indication: Prophylaxis
     Dosage: 1 DOSAGE FORM, QD
     Dates: start: 20250329
  7. Flaricel [Concomitant]
     Indication: Bacterial infection
     Dosage: 1 DOSAGE FORM, QD
     Dates: start: 20250329
  8. Flaricel [Concomitant]
     Dosage: 90 MILLIGRAM, QD
     Route: 065
     Dates: start: 20250329
  9. METRONIDAZOLE [Concomitant]
     Active Substance: METRONIDAZOLE
     Indication: Infection parasitic
  10. CARVEDILOL [Concomitant]
     Active Substance: CARVEDILOL
     Indication: Extrasystoles
     Dosage: 6.25 MILLIGRAM, QD
     Dates: start: 202412
  11. ETORICOXIB [Concomitant]
     Active Substance: ETORICOXIB
     Indication: Pain
     Dosage: 90 MILLIGRAM, QD
  12. BUPRENORPHINE [Concomitant]
     Active Substance: BUPRENORPHINE
     Indication: Spinal pain
     Dosage: 30 MILLIGRAM, Q72H
     Dates: start: 2010
  13. ESOMEPRAZOLE [Concomitant]
     Active Substance: ESOMEPRAZOLE
     Indication: Gastrointestinal disorder prophylaxis
     Dosage: 40 MILLIGRAM, Q12H
     Dates: start: 20250329
  14. TELMISARTAN [Concomitant]
     Active Substance: TELMISARTAN
     Indication: Extrasystoles
     Dosage: 80 MG/12.5 MG ONCE EVERY 24 HOURS
     Dates: start: 20250329
  15. COMBIVENT [Concomitant]
     Active Substance: ALBUTEROL SULFATE\IPRATROPIUM BROMIDE
     Indication: Chronic obstructive pulmonary disease
     Dosage: 1.68 MG/8.77 MG/1 ML, ONCE EVERY 8 HOURS
     Dates: start: 2020
  16. L arginina [Concomitant]
     Indication: Diabetes mellitus
     Dosage: 20 INTERNATIONAL UNIT, QD
     Route: 065
     Dates: start: 202407

REACTIONS (14)
  - Chest discomfort [Recovering/Resolving]
  - Chest pain [Not Recovered/Not Resolved]
  - Cough [Not Recovered/Not Resolved]
  - Nipple pain [Recovering/Resolving]
  - Breast pain [Recovering/Resolving]
  - Oxygen saturation decreased [Recovered/Resolved]
  - Abdominal distension [Recovering/Resolving]
  - Dyspnoea [Not Recovered/Not Resolved]
  - Flatulence [Recovering/Resolving]
  - Constipation [Recovering/Resolving]
  - Oropharyngeal discomfort [Not Recovered/Not Resolved]
  - Gastritis [Not Recovered/Not Resolved]
  - Chest discomfort [Unknown]
  - Gastrooesophageal reflux disease [Unknown]

NARRATIVE: CASE EVENT DATE: 20250329
